FAERS Safety Report 4623237-5 (Version None)
Quarter: 2005Q1

REPORT INFORMATION
  Report Type: 
  Country: None (occurrence: None)
  Receive Date: 20050329
  Receipt Date: 20050323
  Transmission Date: 20050727
  Serious: Yes (Hospitalization)
  Sender: FDA-Public Use
  Company Number: 2005-BP-04789RO

PATIENT
  Age: 54 Year
  Sex: Male

DRUGS (1)
  1. LITHIUM CARBONATE [Suspect]
     Dosage: 900 MG TID (300 MG), PO
     Route: 048

REACTIONS (6)
  - AMNESIA [None]
  - DEHYDRATION [None]
  - DEPRESSED LEVEL OF CONSCIOUSNESS [None]
  - INFLUENZA [None]
  - NASOPHARYNGITIS [None]
  - THERAPEUTIC AGENT TOXICITY [None]
